FAERS Safety Report 4755557-8 (Version None)
Quarter: 2005Q3

REPORT INFORMATION
  Report Type: 
  Country: None (occurrence: None)
  Receive Date: 20050830
  Receipt Date: 20050517
  Transmission Date: 20060218
  Serious: No
  Sender: FDA-Public Use
  Company Number: US-BRISTOL-MYERS SQUIBB COMPANY-12971420

PATIENT
  Age: 43 Year
  Sex: Female

DRUGS (6)
  1. ABILIFY [Suspect]
     Indication: BIPOLAR DISORDER
     Dates: start: 20040101
  2. LEXAPRO [Suspect]
     Indication: DEPRESSION
     Dosage: INCREASED TO 20 MG/DAY AFTER 1 WEEK OF THERAPY.
     Route: 048
     Dates: start: 20040101
  3. LEXAPRO [Suspect]
     Indication: ANXIETY
     Dosage: INCREASED TO 20 MG/DAY AFTER 1 WEEK OF THERAPY.
     Route: 048
     Dates: start: 20040101
  4. TOPAMAX [Concomitant]
  5. AMBIEN [Concomitant]
  6. ATIVAN [Concomitant]

REACTIONS (10)
  - ABDOMINAL DISTENSION [None]
  - AMENORRHOEA [None]
  - BLISTER [None]
  - CONSTIPATION [None]
  - FACE OEDEMA [None]
  - HYPOMENORRHOEA [None]
  - INCREASED TENDENCY TO BRUISE [None]
  - MENORRHAGIA [None]
  - POLYMENORRHOEA [None]
  - VISION BLURRED [None]
